FAERS Safety Report 23832855 (Version 1)
Quarter: 2024Q2

REPORT INFORMATION
  Report Type: Spontaneous
  Country: US (occurrence: None)
  Receive Date: 20240507
  Receipt Date: 20240507
  Transmission Date: 20240716
  Serious: No
  Sender: FDA-Public Use
  Company Number: None

PATIENT
  Age: 79 Year
  Sex: Male

DRUGS (2)
  1. SKYRIZI [Suspect]
     Active Substance: RISANKIZUMAB-RZAA
     Indication: Crohn^s disease
     Dosage: 360MG EVERY 8 WEEKS ?
  2. REMICADE [Concomitant]
     Active Substance: INFLIXIMAB

REACTIONS (5)
  - Drug ineffective [None]
  - Diarrhoea [None]
  - Clostridium difficile infection [None]
  - Therapy interrupted [None]
  - Flatulence [None]
